FAERS Safety Report 5381267-2 (Version None)
Quarter: 2007Q3

REPORT INFORMATION
  Report Type: 
  Country: None (occurrence: None)
  Receive Date: 20070702
  Receipt Date: 20070427
  Transmission Date: 20080115
  Serious: Yes (Hospitalization)
  Sender: FDA-Public Use
  Company Number: SPV1-2007-02324

PATIENT
  Age: 29 Year
  Sex: Male

DRUGS (3)
  1. PENTASA [Suspect]
     Indication: COLITIS ULCERATIVE
     Dosage: 250 MG 3X'S DAILY, ORAL
     Route: 048
     Dates: start: 20070407, end: 20070409
  2. SALAZOPYRIN(SULFASALAZINE) [Suspect]
     Indication: COLITIS ULCERATIVE
     Dosage: 500 MG 3X'S DAILY, ORAL
     Route: 048
     Dates: start: 20070330, end: 20070407
  3. SALAZOPYRIN(SULFASALAZINE) [Suspect]
     Indication: COLITIS ULCERATIVE
     Dosage: 500 MG 3X'S DAILY, ORAL
     Route: 048
     Dates: start: 20070409, end: 20070411

REACTIONS (2)
  - PYREXIA [None]
  - RASH [None]
